FAERS Safety Report 11271275 (Version 1)
Quarter: 2015Q3

REPORT INFORMATION
  Report Type: Spontaneous
  Country: CN (occurrence: CN)
  Receive Date: 20150714
  Receipt Date: 20150714
  Transmission Date: 20151125
  Serious: Yes (Death, Other)
  Sender: FDA-Public Use
  Company Number: PHHY2015CN083687

PATIENT
  Age: 72 Year
  Sex: Female

DRUGS (1)
  1. PREDNISOLONE. [Suspect]
     Active Substance: PREDNISOLONE
     Indication: HEPATIC FAILURE
     Dosage: 30 MG, LOADING DOSE
     Route: 065

REACTIONS (2)
  - Oral fungal infection [Recovered/Resolved]
  - Death [Fatal]
